FAERS Safety Report 11405268 (Version 2)
Quarter: 2015Q4

REPORT INFORMATION
  Report Type: Report from Study
  Country: BR (occurrence: BR)
  Receive Date: 20150821
  Receipt Date: 20151013
  Transmission Date: 20160304
  Serious: Yes (Other)
  Sender: FDA-Public Use
  Company Number: BR-BAYER-2015-399369

PATIENT
  Age: 65 Year
  Sex: Female

DRUGS (1)
  1. NEXAVAR [Suspect]
     Active Substance: SORAFENIB
     Indication: HEPATIC CANCER
     Dosage: UNK
     Route: 048
     Dates: end: 201508

REACTIONS (5)
  - Palmar-plantar erythrodysaesthesia syndrome [None]
  - Liver disorder [Unknown]
  - Hepatic function abnormal [None]
  - Immunodeficiency [Unknown]
  - Platelet count decreased [Unknown]
